FAERS Safety Report 9821523 (Version 1)
Quarter: 2014Q1

REPORT INFORMATION
  Report Type: Spontaneous
  Country: US (occurrence: US)
  Receive Date: 20140116
  Receipt Date: 20140116
  Transmission Date: 20141002
  Serious: No
  Sender: FDA-Public Use
  Company Number: US-TEVA-456547USA

PATIENT
  Age: 73 Year
  Sex: Female
  Weight: 71.73 kg

DRUGS (9)
  1. PROAIR HFA [Suspect]
     Indication: ASTHMA
     Dates: start: 20140110
  2. ETODOLAC [Concomitant]
     Indication: ARTHRITIS
  3. ADVAIR [Concomitant]
     Indication: ASTHMA
  4. HYDROCHLOROTHIAZIDE [Concomitant]
     Indication: HYPERTENSION
  5. LEVOXYL [Concomitant]
     Indication: HYPOTHYROIDISM
  6. LIPITOR [Concomitant]
     Indication: HYPERCHOLESTEROLAEMIA
  7. MIRALAX [Concomitant]
     Indication: CONSTIPATION
  8. NEXIUM [Concomitant]
     Indication: GASTROOESOPHAGEAL REFLUX DISEASE
  9. FLONASE [Concomitant]

REACTIONS (3)
  - Chills [Not Recovered/Not Resolved]
  - Dizziness [Not Recovered/Not Resolved]
  - Dizziness [Not Recovered/Not Resolved]
